FAERS Safety Report 9818394 (Version 5)
Quarter: 2014Q3

REPORT INFORMATION
  Report Type: Spontaneous
  Country: US (occurrence: US)
  Receive Date: 20140115
  Receipt Date: 20140912
  Transmission Date: 20150326
  Serious: Yes (Other)
  Sender: FDA-Public Use
  Company Number: US-PFIZER INC-2014011160

PATIENT
  Age: 60 Year
  Sex: Female
  Weight: 82.09 kg

DRUGS (20)
  1. SUTENT [Suspect]
     Active Substance: SUNITINIB MALATE
     Dosage: 50 MG DAILY (2 WEEKS ON AND 1 WEEK OFF)
  2. SPIRIVA [Concomitant]
     Active Substance: TIOTROPIUM BROMIDE MONOHYDRATE
     Dosage: DAILY
  3. SUTENT [Suspect]
     Active Substance: SUNITINIB MALATE
     Dosage: 37.5 MG (2 WEEKS ON AND 1 WEEK OFF)
     Dates: start: 201401
  4. HYDROCODONE [Concomitant]
     Active Substance: HYDROCODONE
     Dosage: UNK
  5. FLINTSTONE VITAMINS W/IRON [Concomitant]
     Dosage: UNK
  6. GABAPENTIN. [Concomitant]
     Active Substance: GABAPENTIN
     Dosage: UNK
  7. HYDROCORTISONE. [Concomitant]
     Active Substance: HYDROCORTISONE
     Dosage: UNK
  8. SYNTHROID [Concomitant]
     Active Substance: LEVOTHYROXINE SODIUM
     Indication: THYROID DISORDER
     Dosage: UNK
  9. PROBIOTICS [Concomitant]
     Active Substance: PROBIOTICS NOS
     Dosage: UNK
  10. CALCIUM CARBONATE WITH D [Concomitant]
     Dosage: UNK
  11. OSTEO BI-FLEX [Concomitant]
     Active Substance: CHONDROITIN SULFATE A\GLUCOSAMINE
     Dosage: UNK
  12. IMODIUM A-D [Concomitant]
     Active Substance: LOPERAMIDE HYDROCHLORIDE
     Dosage: UNK
  13. LEVOTHYROXINE [Concomitant]
     Active Substance: LEVOTHYROXINE
     Dosage: UNK
  14. KLONOPIN [Concomitant]
     Active Substance: CLONAZEPAM
     Dosage: UNK
  15. FOLIC ACID. [Concomitant]
     Active Substance: FOLIC ACID
     Dosage: UNK
  16. SUTENT [Suspect]
     Active Substance: SUNITINIB MALATE
     Indication: RENAL CELL CARCINOMA
     Dosage: CYCLIC: 50 MG ONE DAY ALTERNATING WITH 37.5 MG FOR 2 DAYS
     Dates: start: 20130501
  17. VITAMIN C [Concomitant]
     Active Substance: ASCORBIC ACID
  18. METHOCARBAMOL. [Concomitant]
     Active Substance: METHOCARBAMOL
     Dosage: UNK
  19. PHENERGAN [Concomitant]
     Active Substance: PROMETHAZINE HYDROCHLORIDE
     Dosage: UNK
  20. POTASSIUM [Concomitant]
     Active Substance: POTASSIUM

REACTIONS (15)
  - Lung infection [Unknown]
  - Diarrhoea [Unknown]
  - Atelectasis [Unknown]
  - Dehydration [Unknown]
  - Petechiae [Recovering/Resolving]
  - Fatigue [Unknown]
  - Disease progression [Unknown]
  - Asthenia [Unknown]
  - Thyroid disorder [Unknown]
  - Blood creatinine increased [Unknown]
  - Vomiting [Unknown]
  - Lung disorder [Unknown]
  - Blood urea increased [Unknown]
  - Nausea [Unknown]
  - Renal cell carcinoma [Unknown]
